FAERS Safety Report 18613904 (Version 1)
Quarter: 2020Q4

REPORT INFORMATION
  Report Type: Spontaneous
  Country: US (occurrence: US)
  Receive Date: 20201214
  Receipt Date: 20201214
  Transmission Date: 20210114
  Serious: No
  Sender: FDA-Public Use
  Company Number: US-NOVOPROD-716706

PATIENT
  Age: 73 Year
  Sex: Female

DRUGS (1)
  1. LEVEMIR [Suspect]
     Active Substance: INSULIN DETEMIR
     Indication: TYPE 2 DIABETES MELLITUS
     Dosage: 16 IU
     Route: 058
     Dates: start: 2015

REACTIONS (3)
  - Blood glucose increased [Recovered/Resolved]
  - Product storage error [Unknown]
  - Stress [Recovered/Resolved]

NARRATIVE: CASE EVENT DATE: 202001
